FAERS Safety Report 6336291-X (Version None)
Quarter: 2009Q3

REPORT INFORMATION
  Report Type: 
  Country: None (occurrence: None)
  Receive Date: 20090901
  Receipt Date: 20090824
  Transmission Date: 20100115
  Serious: Yes (Other)
  Sender: FDA-Public Use
  Company Number: US-WYE-H10702409

PATIENT
  Age: 70 Year
  Sex: Female

DRUGS (2)
  1. TORISEL [Suspect]
     Indication: ENDOMETRIAL CANCER
     Route: 042
     Dates: start: 20090525, end: 20090804
  2. DOXORUBICIN HCL [Concomitant]

REACTIONS (3)
  - DYSPNOEA [None]
  - HYPOXIA [None]
  - LUNG INFILTRATION [None]
